FAERS Safety Report 9025612 (Version 4)
Quarter: 2013Q2

REPORT INFORMATION
  Report Type: Spontaneous
  Country: US (occurrence: US)
  Receive Date: 20130123
  Receipt Date: 20130429
  Transmission Date: 20140414
  Serious: Yes (Hospitalization)
  Sender: FDA-Public Use
  Company Number: US-B.I. PHARMACEUTICALS,INC./RIDGEFIELD-2013-BI-00948BP

PATIENT
  Age: 66 Year
  Sex: Female
  Weight: 112.94 kg

DRUGS (14)
  1. PRADAXA [Suspect]
     Indication: ATRIAL FIBRILLATION
     Dosage: 300 MG
     Route: 048
     Dates: start: 20111130, end: 20111226
  2. AMIODARONE [Concomitant]
     Dosage: 200 MG
     Route: 048
  3. TOPROL XL [Concomitant]
     Dosage: 50 MG
     Route: 048
  4. MICARDIS HCT [Concomitant]
     Route: 048
  5. ROBAXIN [Concomitant]
     Indication: PAIN
     Route: 048
  6. LORTAB [Concomitant]
     Indication: PAIN
     Route: 048
  7. AMLODIPINE [Concomitant]
     Dosage: 5 MG
     Route: 048
  8. SIMVASTATIN [Concomitant]
     Dosage: 40 MG
     Route: 048
  9. ADVAIR [Concomitant]
     Route: 055
  10. CALCIUM [Concomitant]
     Dosage: 600 MG
     Route: 048
  11. VITAMIN D3 [Concomitant]
     Dosage: 1000 U
     Route: 048
  12. B12 [Concomitant]
     Dosage: 100 MCG
     Route: 048
  13. IRON [Concomitant]
     Dosage: 65 MG
     Route: 048
  14. POTASSIUM GLUCONATE [Concomitant]
     Dosage: 100 MG
     Route: 048

REACTIONS (3)
  - Syncope [Unknown]
  - Upper gastrointestinal haemorrhage [Unknown]
  - Dyspepsia [Unknown]
